FAERS Safety Report 6936280-8 (Version None)
Quarter: 2010Q3

REPORT INFORMATION
  Report Type: 
  Country: None (occurrence: None)
  Receive Date: 20100823
  Receipt Date: 20100810
  Transmission Date: 20110219
  Serious: Yes (Hospitalization)
  Sender: FDA-Public Use
  Company Number: FR-JNJFOC-20100804070

PATIENT
  Sex: Male

DRUGS (4)
  1. REOPRO [Suspect]
     Indication: ACUTE CORONARY SYNDROME
     Route: 040
  2. LYSINE ACETYLSALICYLATE [Concomitant]
  3. MORPHINE [Concomitant]
  4. ENOXAPARIN SODIUM [Concomitant]

REACTIONS (5)
  - ANAEMIA [None]
  - EAR HAEMORRHAGE [None]
  - HAEMATEMESIS [None]
  - MELAENA [None]
  - OESOPHAGEAL ULCER [None]
